FAERS Safety Report 7486636-2 (Version None)
Quarter: 2011Q2

REPORT INFORMATION
  Report Type: 
  Country: None (occurrence: None)
  Receive Date: 20110517
  Receipt Date: 20100630
  Transmission Date: 20111010
  Serious: No
  Sender: FDA-Public Use
  Company Number: US-NOVEN-ALL1-2010-03656

PATIENT

DRUGS (5)
  1. SINGULAIR [Concomitant]
     Dosage: 4 MG, 1X/DAY:QD
     Route: 048
     Dates: start: 20090101
  2. DAYTRANA [Suspect]
     Dosage: 40 MG, 1X/DAY:QD (TWO 20MG PATCHES DAILY)
     Route: 062
     Dates: start: 20100601
  3. DAYTRANA [Suspect]
     Dosage: 15 MG, 1X/DAY:QD
     Route: 062
     Dates: start: 20100402, end: 20100601
  4. PROAIR HFA [Concomitant]
     Dosage: 90 UG, AS REQ'D (2 PUFFS Q4-6 HRS PRN)
     Route: 055
     Dates: start: 20091201
  5. EPIPEN [Concomitant]
     Dosage: UNK, UNKNOWN
     Route: 058

REACTIONS (4)
  - PRODUCT QUALITY ISSUE [None]
  - PERFORMANCE STATUS DECREASED [None]
  - OVERDOSE [None]
  - OFF LABEL USE [None]
